FAERS Safety Report 24812559 (Version 2)
Quarter: 2025Q1

REPORT INFORMATION
  Report Type: Spontaneous
  Country: CH (occurrence: CH)
  Receive Date: 20250107
  Receipt Date: 20250127
  Transmission Date: 20250408
  Serious: Yes (Hospitalization, Other)
  Sender: ABBVIE
  Company Number: None

PATIENT
  Age: 42 Year
  Sex: Female
  Weight: 81 kg

DRUGS (18)
  1. VENETOCLAX [Suspect]
     Active Substance: VENETOCLAX
     Indication: Acute myeloid leukaemia
     Route: 048
     Dates: start: 20241111, end: 20241118
  2. VENETOCLAX [Suspect]
     Active Substance: VENETOCLAX
     Indication: Acute myeloid leukaemia
     Route: 048
     Dates: start: 20240914, end: 20240927
  3. VENETOCLAX [Suspect]
     Active Substance: VENETOCLAX
     Indication: Acute myeloid leukaemia
     Route: 048
     Dates: start: 20241014, end: 20241021
  4. LEUPROLIDE ACETATE [Suspect]
     Active Substance: LEUPROLIDE ACETATE
     Indication: Product used for unknown indication
     Route: 058
     Dates: end: 20241129
  5. METAMUCIL [Concomitant]
     Active Substance: PLANTAGO SEED
     Indication: Product used for unknown indication
  6. CREON [Concomitant]
     Active Substance: PANCRELIPASE AMYLASE\PANCRELIPASE LIPASE\PANCRELIPASE PROTEASE
     Indication: Product used for unknown indication
     Route: 048
  7. CIPRALEX [Concomitant]
     Active Substance: ESCITALOPRAM OXALATE
     Indication: Product used for unknown indication
     Route: 048
  8. VALTREX [Concomitant]
     Active Substance: VALACYCLOVIR HYDROCHLORIDE
     Indication: Antiviral prophylaxis
     Route: 048
  9. LYUMJEV [Concomitant]
     Active Substance: INSULIN LISPRO-AABC
     Indication: Pancreatogenous diabetes
     Route: 058
  10. MINERAL OIL [Concomitant]
     Active Substance: MINERAL OIL
     Indication: Product used for unknown indication
     Route: 048
  11. XYZAL [Concomitant]
     Active Substance: LEVOCETIRIZINE DIHYDROCHLORIDE
     Indication: Product used for unknown indication
     Route: 048
  12. Posaconazol sandoz [Concomitant]
     Indication: Antifungal prophylaxis
     Route: 048
  13. VIDAZA [Suspect]
     Active Substance: AZACITIDINE
     Indication: Acute myeloid leukaemia
     Route: 058
     Dates: start: 20241014, end: 20241018
  14. VIDAZA [Suspect]
     Active Substance: AZACITIDINE
     Indication: Acute myeloid leukaemia
     Route: 058
     Dates: start: 20240914, end: 20240927
  15. VIDAZA [Suspect]
     Active Substance: AZACITIDINE
     Indication: Acute myeloid leukaemia
     Route: 058
     Dates: start: 20241111, end: 20241115
  16. ESOMEPRAZOLE [Concomitant]
     Active Substance: ESOMEPRAZOLE
     Indication: Product used for unknown indication
     Route: 048
  17. EUTHYROX [Concomitant]
     Active Substance: LEVOTHYROXINE SODIUM
     Indication: Autoimmune thyroiditis
  18. BURGERSTEIN MULTIVITAMIN [Concomitant]
     Indication: Product used for unknown indication
     Route: 048

REACTIONS (18)
  - Febrile neutropenia [Recovering/Resolving]
  - Pancytopenia [Recovering/Resolving]
  - Staphylococcal infection [Unknown]
  - Haematoma [Unknown]
  - Intraductal papillary mucinous neoplasm [Unknown]
  - Leukopenia [Unknown]
  - Autoimmune thyroiditis [Unknown]
  - Anaemia [Unknown]
  - Thrombocytopenia [Unknown]
  - Pancreatogenous diabetes [Unknown]
  - Colitis [Unknown]
  - Abdominal lymphadenopathy [Unknown]
  - Drain placement [Recovering/Resolving]
  - Pain [Unknown]
  - Clostridium difficile infection [Unknown]
  - Medical device site discomfort [Recovering/Resolving]
  - Medical device site pain [Recovering/Resolving]
  - Medical device site pruritus [Recovering/Resolving]

NARRATIVE: CASE EVENT DATE: 20240101
